FAERS Safety Report 20620691 (Version 1)
Quarter: 2022Q1

REPORT INFORMATION
  Report Type: Spontaneous
  Country: US (occurrence: US)
  Receive Date: 20220322
  Receipt Date: 20220322
  Transmission Date: 20220423
  Serious: Yes (Hospitalization)
  Sender: FDA-Public Use
  Company Number: US-SA-SAC20220317000155

PATIENT
  Age: 49 Year
  Sex: Female
  Weight: 133.81 kg

DRUGS (12)
  1. AUBAGIO [Suspect]
     Active Substance: TERIFLUNOMIDE
     Indication: Multiple sclerosis
     Dosage: 1 DF, QD
     Route: 048
     Dates: start: 202009
  2. METHYLPREDNISOLONE SODIUM SUCCINATE [Suspect]
     Active Substance: METHYLPREDNISOLONE SODIUM SUCCINATE
  3. LORTAB [Suspect]
     Active Substance: ACETAMINOPHEN\HYDROCODONE BITARTRATE
  4. RYBELSUS [Concomitant]
     Active Substance: SEMAGLUTIDE
  5. XANAX [Concomitant]
     Active Substance: ALPRAZOLAM
  6. RIZATRIPTAN [Concomitant]
     Active Substance: RIZATRIPTAN
  7. MENAQUINONE 6 [Concomitant]
     Active Substance: MENAQUINONE 6
  8. VITAMIN D3 [Concomitant]
     Active Substance: CHOLECALCIFEROL
  9. JARDIANCE [Concomitant]
     Active Substance: EMPAGLIFLOZIN
  10. METHIMAZOLE [Concomitant]
     Active Substance: METHIMAZOLE
  11. VITAMIN B12 [Concomitant]
     Active Substance: CYANOCOBALAMIN
  12. B12 ACTIVE [Concomitant]

REACTIONS (4)
  - Urticaria [Unknown]
  - Generalised oedema [Unknown]
  - Drug hypersensitivity [Unknown]
  - Pain [Unknown]
